FAERS Safety Report 8582065-9 (Version None)
Quarter: 2012Q3

REPORT INFORMATION
  Report Type: 
  Country: None (occurrence: None)
  Receive Date: 20120809
  Receipt Date: 20120806
  Transmission Date: 20120928
  Serious: Yes (Other)
  Sender: FDA-Public Use
  Company Number: US-PFIZER INC-2012191044

PATIENT
  Age: 52 Year
  Sex: Female
  Weight: 84.807 kg

DRUGS (12)
  1. NEURONTIN [Concomitant]
     Indication: SPINAL FRACTURE
     Dosage: UNK
  2. ZOLOFT [Concomitant]
     Dosage: UNK
  3. DIAZEPAM [Concomitant]
     Indication: SPINAL FRACTURE
     Dosage: UNK
  4. PRAVASTATIN [Concomitant]
     Dosage: 40 MG, UNK
  5. CARBIDOPA [Concomitant]
     Dosage: UNK
  6. NITROSTAT [Suspect]
     Indication: MYOCARDIAL INFARCTION
     Dosage: 0.4 MG, AS NEEDED
     Route: 060
     Dates: start: 20100101
  7. ACTOS [Concomitant]
     Dosage: UNK
  8. GLIMEPIRIDE [Concomitant]
     Indication: DIABETES MELLITUS
     Dosage: 2 MG, UNK
  9. MELOXICAM [Concomitant]
     Dosage: 15 MG, UNK
     Dates: start: 19900101
  10. ACCUPRIL [Concomitant]
     Dosage: UNK
  11. NITROSTAT [Suspect]
     Indication: CARDIAC DISORDER
  12. LORTAB [Concomitant]
     Indication: SPINAL FRACTURE
     Dosage: UNK

REACTIONS (3)
  - ARTHROPATHY [None]
  - GLYCOSYLATED HAEMOGLOBIN INCREASED [None]
  - BLOOD TRIGLYCERIDES INCREASED [None]
